FAERS Safety Report 12448486 (Version 1)
Quarter: 2016Q2

REPORT INFORMATION
  Report Type: Spontaneous
  Country: FR (occurrence: FR)
  Receive Date: 20160608
  Receipt Date: 20160608
  Transmission Date: 20160815
  Serious: Yes (Hospitalization, Other)
  Sender: FDA-Public Use
  Company Number: FR-BRISTOL-MYERS SQUIBB COMPANY-BMS-2016-043133

PATIENT
  Age: 63 Year
  Sex: Female
  Weight: 41 kg

DRUGS (1)
  1. OPDIVO [Suspect]
     Active Substance: NIVOLUMAB
     Indication: SQUAMOUS CELL CARCINOMA
     Dosage: 123 MG, UNK
     Route: 042
     Dates: start: 20151127

REACTIONS (8)
  - Keratitis [Recovered/Resolved]
  - Neuropathy peripheral [Unknown]
  - Conjunctivitis [Unknown]
  - Hemianopia homonymous [Recovered/Resolved]
  - Confusional state [Recovered/Resolved]
  - Motor neurone disease [Recovered/Resolved]
  - Malignant neoplasm progression [Unknown]
  - Dysarthria [Recovered/Resolved]

NARRATIVE: CASE EVENT DATE: 20151129
